FAERS Safety Report 13148598 (Version 1)
Quarter: 2017Q1

REPORT INFORMATION
  Report Type: Spontaneous
  Country: US (occurrence: US)
  Receive Date: 20170125
  Receipt Date: 20170125
  Transmission Date: 20170428
  Serious: Yes (Other)
  Sender: FDA-Public Use
  Company Number: US-LPDUSPRD-20170035

PATIENT
  Age: 60 Year

DRUGS (2)
  1. NORMAL SALINE SOLUTION [Concomitant]
     Dosage: 1.5 ML
     Route: 051
  2. DEXAMETHASONE SODIUM PHOSPHATE INJECTION, USP (4901-25) [Suspect]
     Active Substance: DEXAMETHASONE SODIUM PHOSPHATE
     Dosage: 1.5 ML
     Route: 051

REACTIONS (2)
  - Off label use [Unknown]
  - Conus medullaris syndrome [Unknown]
